FAERS Safety Report 5337677-2 (Version None)
Quarter: 2007Q2

REPORT INFORMATION
  Report Type: 
  Country: None (occurrence: None)
  Receive Date: 20070524
  Receipt Date: 20070509
  Transmission Date: 20071010
  Serious: Yes (Hospitalization)
  Sender: FDA-Public Use
  Company Number: DSA_29377_2007

PATIENT
  Sex: Female

DRUGS (14)
  1. ATIVAN [Suspect]
     Indication: INSOMNIA
     Dosage: (ORAL)
     Route: 048
     Dates: start: 20061208, end: 20061208
  2. ATIVAN [Suspect]
     Indication: ANXIETY DISORDER
     Dosage: (1 MG 3X/WEEK ORAL)
     Route: 048
     Dates: start: 20050406, end: 20061201
  3. ATIVAN [Suspect]
     Dosage: (1 MG 3X/WEEK ORAL)
     Route: 048
     Dates: start: 20061201
  4. EPOGEN [Concomitant]
  5. ZEMPLAR [Concomitant]
  6. DEPAKOTE [Concomitant]
  7. RENAX [Concomitant]
  8. PAXIL [Concomitant]
  9. ZYPREXA [Concomitant]
  10. NEURONTIN [Concomitant]
  11. SYNTHROID [Concomitant]
  12. FOSRENOL [Concomitant]
  13. SENSIPAR [Concomitant]
  14. RENAGEL [Concomitant]

REACTIONS (11)
  - ACCIDENTAL OVERDOSE [None]
  - ASTERIXIS [None]
  - ATRIOVENTRICULAR BLOCK FIRST DEGREE [None]
  - COUGH [None]
  - DYSARTHRIA [None]
  - ENCEPHALOPATHY [None]
  - HAEMATOMA [None]
  - HAEMOGLOBIN DECREASED [None]
  - HEAD INJURY [None]
  - METABOLIC ENCEPHALOPATHY [None]
  - TREATMENT NONCOMPLIANCE [None]
